FAERS Safety Report 18399870 (Version 1)
Quarter: 2020Q4

REPORT INFORMATION
  Report Type: Spontaneous
  Country: US (occurrence: US)
  Receive Date: 20201019
  Receipt Date: 20201019
  Transmission Date: 20210114
  Serious: No
  Sender: FDA-Public Use
  Company Number: US-ALLERGAN-1936564US

PATIENT
  Age: 58 Year
  Sex: Male

DRUGS (3)
  1. VRAYLAR [Suspect]
     Active Substance: CARIPRAZINE
     Indication: ANXIETY
     Dosage: 1.5 MG, QD
     Route: 048
     Dates: start: 201709, end: 201804
  2. VRAYLAR [Suspect]
     Active Substance: CARIPRAZINE
     Indication: DEPRESSION
  3. KLONOPIN [Concomitant]
     Active Substance: CLONAZEPAM
     Indication: ANXIETY
     Dosage: UNK UNK, QHS
     Dates: start: 201804

REACTIONS (1)
  - Hallucination, visual [Recovered/Resolved]

NARRATIVE: CASE EVENT DATE: 2017
